FAERS Safety Report 5371957-X (Version None)
Quarter: 2007Q2

REPORT INFORMATION
  Report Type: 
  Country: None (occurrence: None)
  Receive Date: 20070627
  Receipt Date: 20070619
  Transmission Date: 20071010
  Serious: No
  Sender: FDA-Public Use
  Company Number: US-BAXTER-2007BH005600

PATIENT

DRUGS (3)
  1. MILRINONE [Suspect]
     Indication: HEART TRANSPLANT
     Dosage: DOSE UNIT:UNKNOWN
     Route: 041
  2. EPINEPHRINE [Suspect]
     Indication: HEART TRANSPLANT
     Dosage: DOSE UNIT:UNKNOWN
     Route: 041
  3. PROPOFOL [Suspect]
     Indication: HEART TRANSPLANT
     Dosage: DOSE UNIT:UNKNOWN
     Route: 041

REACTIONS (2)
  - BLOOD PRESSURE DECREASED [None]
  - DEVICE FAILURE [None]
